FAERS Safety Report 8588857-4 (Version None)
Quarter: 2012Q3

REPORT INFORMATION
  Report Type: 
  Country: None (occurrence: None)
  Receive Date: 20120813
  Receipt Date: 20120808
  Transmission Date: 20120928
  Serious: Yes (Other)
  Sender: FDA-Public Use
  Company Number: SE-PFIZER INC-2012193972

PATIENT
  Sex: Male

DRUGS (1)
  1. ALPRAZOLAM [Suspect]
     Dosage: 3 TABLETS, UNK

REACTIONS (2)
  - LOSS OF CONSCIOUSNESS [None]
  - INTENTIONAL DRUG MISUSE [None]
